FAERS Safety Report 5061265-9 (Version None)
Quarter: 2006Q3

REPORT INFORMATION
  Report Type: 
  Country: None (occurrence: None)
  Receive Date: 20060721
  Receipt Date: 20060721
  Transmission Date: 20061208
  Serious: Yes (Hospitalization)
  Sender: FDA-Public Use
  Company Number: None

PATIENT
  Age: 21 Year
  Sex: Male

DRUGS (1)
  1. CLOZAPINE [Suspect]
     Indication: SCHIZOPHRENIA
     Dosage: 300MG HS PO     75 MG AM PO
     Route: 048
     Dates: start: 20060604, end: 20060620

REACTIONS (6)
  - BODY TEMPERATURE INCREASED [None]
  - ELECTROCARDIOGRAM T WAVE ABNORMAL [None]
  - HEART RATE INCREASED [None]
  - MALAISE [None]
  - TROPONIN INCREASED [None]
  - UPPER RESPIRATORY TRACT INFECTION [None]
